FAERS Safety Report 16033779 (Version 1)
Quarter: 2019Q1

REPORT INFORMATION
  Report Type: Report from Study
  Country: None (occurrence: US)
  Receive Date: 20190305
  Receipt Date: 20190305
  Transmission Date: 20190418
  Serious: Yes (Other)
  Sender: FDA-Public Use
  Company Number: US-ABBVIE-18K-163-2492849-00

PATIENT
  Age: 52 Year
  Sex: Female

DRUGS (1)
  1. HUMIRA [Suspect]
     Active Substance: ADALIMUMAB
     Indication: PSORIATIC ARTHROPATHY
     Route: 058
     Dates: start: 20180822, end: 20190109

REACTIONS (23)
  - Musculoskeletal stiffness [Not Recovered/Not Resolved]
  - Joint stiffness [Unknown]
  - Fall [Unknown]
  - Injection site pain [Unknown]
  - Pain in extremity [Not Recovered/Not Resolved]
  - Skin haemorrhage [Not Recovered/Not Resolved]
  - Wound [Recovered/Resolved]
  - Cough [Not Recovered/Not Resolved]
  - Hypoaesthesia [Unknown]
  - Injection site pruritus [Unknown]
  - Pruritus [Unknown]
  - Anxiety [Recovered/Resolved]
  - Musculoskeletal pain [Not Recovered/Not Resolved]
  - Injection site erythema [Unknown]
  - Joint swelling [Unknown]
  - Gait disturbance [Not Recovered/Not Resolved]
  - Paraesthesia [Unknown]
  - Peripheral swelling [Unknown]
  - Rotator cuff syndrome [Unknown]
  - Arthralgia [Not Recovered/Not Resolved]
  - Fatigue [Recovered/Resolved]
  - Injection site bruising [Recovered/Resolved]
  - Hot flush [Not Recovered/Not Resolved]

NARRATIVE: CASE EVENT DATE: 2018
